FAERS Safety Report 10196714 (Version 1)
Quarter: 2014Q2

REPORT INFORMATION
  Report Type: Spontaneous
  Country: US (occurrence: US)
  Receive Date: 20140527
  Receipt Date: 20140527
  Transmission Date: 20141212
  Serious: Yes (Hospitalization, Other)
  Sender: FDA-Public Use
  Company Number: US-BAYER-2014-075105

PATIENT
  Age: 13 Year
  Sex: Female
  Weight: 59 kg

DRUGS (6)
  1. DIPHENHYDRAMINE HYDROCHLORIDE [Suspect]
     Dosage: UNK UNK, ONCE
     Route: 048
  2. NAPROXEN SODIUM ({= 220 MG) [Suspect]
     Dosage: UNK UNK, ONCE
     Route: 048
  3. OMEPRAZOLE [Suspect]
     Dosage: UNK UNK, ONCE
     Route: 048
  4. ACETAMINOPHEN [Suspect]
  5. BUPROPION [Suspect]
  6. CITALOPRAM [Suspect]

REACTIONS (25)
  - Intentional overdose [None]
  - Anticholinergic syndrome [None]
  - Serotonin syndrome [None]
  - Adrenergic syndrome [None]
  - Rhabdomyolysis [None]
  - Agitation [None]
  - Hallucination [None]
  - Hyperthermia [None]
  - Mydriasis [None]
  - Flushing [None]
  - Sweat gland disorder [None]
  - Mucosal dryness [None]
  - Urinary retention [None]
  - Dermatillomania [None]
  - Hypertension [None]
  - Sinus tachycardia [None]
  - Electrocardiogram QT prolonged [None]
  - Tachypnoea [None]
  - Gastrointestinal sounds abnormal [None]
  - Anxiety [None]
  - Disorientation [None]
  - Myoclonus [None]
  - Muscle rigidity [None]
  - Clonus [None]
  - Tremor [None]
